FAERS Safety Report 8138533-7 (Version None)
Quarter: 2012Q1

REPORT INFORMATION
  Report Type: 
  Country: None (occurrence: None)
  Receive Date: 20120213
  Receipt Date: 20120202
  Transmission Date: 20120608
  Serious: Yes (Other)
  Sender: FDA-Public Use
  Company Number: 1000027560

PATIENT
  Age: 71 Year
  Sex: Male

DRUGS (7)
  1. CAPOTEN (CAPTOPRIL) (CAPTOPRIL) [Concomitant]
  2. FOSFOMYCIN (FOSFOMYCIN TROMETAMOL) (3 GRAM, GRANULATE) [Suspect]
     Dosage: 3 GM, ONCE, ORAL
     Route: 048
     Dates: start: 20120113, end: 20120113
  3. DIAMICRON (GLICLAZIDE) (GLICLAZIDE) [Concomitant]
  4. TOLEP (OXCARBAZEPINE) (OXCARBAZEPINE) [Concomitant]
  5. LASIX [Concomitant]
  6. TRUATEC (RAMIPRIL) (RAMIPRIL) [Concomitant]
  7. ANTRA (OMPERAZOLE) (OMEPRAZOLE) [Concomitant]

REACTIONS (2)
  - PRURITUS [None]
  - ERYTHEMA [None]
